FAERS Safety Report 11174670 (Version 8)
Quarter: 2020Q1

REPORT INFORMATION
  Report Type: Report from Study
  Country: JP (occurrence: JP)
  Receive Date: 20150609
  Receipt Date: 20200214
  Transmission Date: 20200409
  Serious: Yes (Other)
  Sender: FDA-Public Use
  Company Number: JP-OTSUKA-2015_001477

PATIENT
  Age: 56 Year
  Sex: Female
  Weight: 65.5 kg

DRUGS (26)
  1. TOLVAPTAN [Suspect]
     Active Substance: TOLVAPTAN
     Dosage: 3.75 MG, QD, IN THE EVENING
     Route: 048
     Dates: start: 20150109, end: 20150110
  2. TOLVAPTAN [Suspect]
     Active Substance: TOLVAPTAN
     Dosage: 7.5 MG, QD, IN THE MORNING
     Route: 048
     Dates: start: 20150111, end: 20150112
  3. TOLVAPTAN [Suspect]
     Active Substance: TOLVAPTAN
     Dosage: 3.75 MG, QD, IN THE EVENING
     Route: 048
     Dates: start: 20150111, end: 20150112
  4. TOLVAPTAN [Suspect]
     Active Substance: TOLVAPTAN
     Dosage: 11.25 MG, QD, IN THE MORNING
     Route: 048
     Dates: start: 20150113, end: 20150114
  5. TOLVAPTAN [Suspect]
     Active Substance: TOLVAPTAN
     Dosage: 22.5 MG, QD, IN THE MORNING
     Route: 048
     Dates: start: 20150115, end: 20150117
  6. TOLVAPTAN [Suspect]
     Active Substance: TOLVAPTAN
     Dosage: 30 MG, QD, IN THE MORNING
     Route: 048
     Dates: start: 20150519, end: 20150622
  7. TOLVAPTAN [Suspect]
     Active Substance: TOLVAPTAN
     Dosage: 30 MG, QD,IN THE EVENING
     Route: 048
     Dates: start: 20150519, end: 20150622
  8. TOLVAPTAN [Suspect]
     Active Substance: TOLVAPTAN
     Dosage: 45 MG, QD, IN THE MORING
     Route: 048
     Dates: start: 20150121, end: 20150123
  9. TOLVAPTAN [Suspect]
     Active Substance: TOLVAPTAN
     Dosage: 75 MG, QD, IN THE MORNING
     Route: 048
     Dates: start: 20150130, end: 20150201
  10. TOLVAPTAN [Suspect]
     Active Substance: TOLVAPTAN
     Dosage: 30 MG, QD,IN THE EVENING
     Route: 048
     Dates: start: 20150130, end: 20150201
  11. TOLVAPTAN [Suspect]
     Active Substance: TOLVAPTAN
     Dosage: 3.75 MG, QD, IN THE MORNING
     Route: 048
     Dates: start: 20150108, end: 20150108
  12. TOLVAPTAN [Suspect]
     Active Substance: TOLVAPTAN
     Dosage: 60 MG, QD, IN THE MORNING
     Route: 048
     Dates: start: 20150124, end: 20150126
  13. TOLVAPTAN [Suspect]
     Active Substance: TOLVAPTAN
     Dosage: 15 MG, QD, IN THE EVENING
     Route: 048
     Dates: start: 20150124, end: 20150126
  14. TOLVAPTAN [Suspect]
     Active Substance: TOLVAPTAN
     Dosage: 60 MG, QD, IN THE MORNING
     Route: 048
     Dates: start: 20150127, end: 20150129
  15. TOLVAPTAN [Suspect]
     Active Substance: TOLVAPTAN
     Indication: CONGENITAL CYSTIC KIDNEY DISEASE
     Dosage: 90 MG, QD, IN THE MORNING
     Route: 048
     Dates: start: 20150202, end: 20150518
  16. TOLVAPTAN [Suspect]
     Active Substance: TOLVAPTAN
     Dosage: 30 MG, QD,IN THE EVENING
     Route: 048
     Dates: start: 20150202, end: 20150518
  17. TOLVAPTAN [Suspect]
     Active Substance: TOLVAPTAN
     Dosage: 7.5 MG, QD, IN THE EVENING
     Route: 048
     Dates: start: 20150115, end: 20150117
  18. AMLODIN [Concomitant]
     Active Substance: AMLODIPINE BESYLATE
     Indication: PRODUCT USED FOR UNKNOWN INDICATION
     Dosage: 5 MG, QD
     Route: 048
  19. TOLVAPTAN [Suspect]
     Active Substance: TOLVAPTAN
     Dosage: 3.75 MG, QD, IN THE MORNING
     Route: 048
     Dates: start: 20150109, end: 20150110
  20. TOLVAPTAN [Suspect]
     Active Substance: TOLVAPTAN
     Dosage: 3.75 MG, QD, IN THE EVENING
     Route: 048
     Dates: start: 20150113, end: 20150114
  21. TOLVAPTAN [Suspect]
     Active Substance: TOLVAPTAN
     Dosage: 15 MG, QD, IN THE EVENING
     Route: 048
     Dates: start: 20150121, end: 20150123
  22. BLOPRESS [Concomitant]
     Active Substance: CANDESARTAN CILEXETIL
     Indication: PRODUCT USED FOR UNKNOWN INDICATION
     Dosage: 8 MG, QD
     Route: 048
  23. TOLVAPTAN [Suspect]
     Active Substance: TOLVAPTAN
     Dosage: 30 MG, QD, IN THE MORNING
     Route: 048
     Dates: start: 20150118, end: 20150120
  24. TOLVAPTAN [Suspect]
     Active Substance: TOLVAPTAN
     Dosage: 15 MG, QD, IN THE EVENING
     Route: 048
     Dates: start: 20150118, end: 20150120
  25. TOLVAPTAN [Suspect]
     Active Substance: TOLVAPTAN
     Dosage: 30 MG, QD,IN THE EVENING
     Route: 048
     Dates: start: 20150127, end: 20150129
  26. MAGLAX [Concomitant]
     Active Substance: MAGNESIUM OXIDE
     Indication: PRODUCT USED FOR UNKNOWN INDICATION
     Dosage: 990 MG, QD
     Route: 048
     Dates: end: 20160613

REACTIONS (7)
  - Oral herpes [Recovering/Resolving]
  - Hyperuricaemia [Recovering/Resolving]
  - Hepatic function abnormal [Recovered/Resolved]
  - Pruritus [Recovering/Resolving]
  - Thirst [Recovering/Resolving]
  - Drug titration error [Unknown]
  - Hypernatraemia [Recovering/Resolving]

NARRATIVE: CASE EVENT DATE: 20150116
